FAERS Safety Report 6593394-2 (Version None)
Quarter: 2010Q1

REPORT INFORMATION
  Report Type: 
  Country: None (occurrence: None)
  Receive Date: 20100222
  Receipt Date: 20090324
  Transmission Date: 20100710
  Serious: No
  Sender: FDA-Public Use
  Company Number: US-BRISTOL-MYERS SQUIBB COMPANY-14558654

PATIENT
  Age: 69 Year
  Sex: Female
  Weight: 63 kg

DRUGS (4)
  1. ORENCIA [Suspect]
     Indication: RHEUMATOID ARTHRITIS
     Dosage: 15 INFUSIONS;LAST INFUSION 23MAR2009.
  2. AMITRIPTYLINE HCL [Concomitant]
  3. CELEBREX [Concomitant]
  4. PREDNISONE [Concomitant]

REACTIONS (2)
  - FATIGUE [None]
  - PAIN [None]
